FAERS Safety Report 12718233 (Version 3)
Quarter: 2016Q4

REPORT INFORMATION
  Report Type: Spontaneous
  Country: JP (occurrence: JP)
  Receive Date: 20160906
  Receipt Date: 20161212
  Transmission Date: 20170207
  Serious: Yes (Death)
  Sender: FDA-Public Use
  Company Number: JP-ELI_LILLY_AND_COMPANY-JP201609000165

PATIENT
  Age: 62 Year
  Sex: Male
  Weight: 55 kg

DRUGS (7)
  1. ERBITUX [Suspect]
     Active Substance: CETUXIMAB
     Indication: RECTAL CANCER
     Dosage: 520 MG, UNKNOWN
     Route: 042
     Dates: start: 20160621, end: 20160719
  2. 5-FU                               /00098801/ [Concomitant]
     Active Substance: FLUOROURACIL
     Indication: RECTAL CANCER
     Dosage: UNK UNK, UNKNOWN
     Route: 042
     Dates: start: 20160621, end: 20160718
  3. GRANISETRON [Concomitant]
     Active Substance: GRANISETRON
     Indication: RECTAL CANCER
     Dosage: 3 MG, 2/M
     Route: 042
     Dates: start: 20160621, end: 20160718
  4. DEXART [Concomitant]
     Active Substance: DEXAMETHASONE SODIUM PHOSPHATE
     Indication: RECTAL CANCER
     Dosage: 6.6 MG, 2/M
     Route: 042
     Dates: start: 20160621, end: 20160718
  5. POLARAMINE [Concomitant]
     Active Substance: DEXCHLORPHENIRAMINE MALEATE
     Indication: RECTAL CANCER
     Dosage: 5 MG, 2/M
     Route: 042
     Dates: start: 20160621, end: 20160718
  6. CAMPTO [Suspect]
     Active Substance: IRINOTECAN
     Indication: RECTAL CANCER
     Dosage: 200 MG, OTHER
     Route: 042
     Dates: start: 20160621, end: 20160718
  7. LEUCOVORIN                         /00566701/ [Concomitant]
     Active Substance: LEUCOVORIN
     Indication: RECTAL CANCER
     Dosage: 250 MG, 2/M
     Route: 042
     Dates: start: 20160621, end: 20160718

REACTIONS (2)
  - Pneumonia bacterial [Fatal]
  - Interstitial lung disease [Fatal]

NARRATIVE: CASE EVENT DATE: 20160725
